FAERS Safety Report 14780138 (Version 4)
Quarter: 2020Q2

REPORT INFORMATION
  Report Type: Spontaneous
  Country: US (occurrence: US)
  Receive Date: 20180419
  Receipt Date: 20200414
  Transmission Date: 20200713
  Serious: Yes (Hospitalization, Other)
  Sender: FDA-Public Use
  Company Number: US-ASTRAZENECA-2018SE47029

PATIENT
  Age: 22574 Day
  Sex: Male
  Weight: 88.9 kg

DRUGS (27)
  1. FLOXIN [Concomitant]
     Active Substance: OFLOXACIN
  2. CHANTIX [Concomitant]
     Active Substance: VARENICLINE TARTRATE
  3. CLONIDINE. [Concomitant]
     Active Substance: CLONIDINE
  4. CARVEDILOL. [Concomitant]
     Active Substance: CARVEDILOL
  5. HYDRALAZINE [Concomitant]
     Active Substance: HYDRALAZINE HYDROCHLORIDE
  6. AMLODIPINE [Concomitant]
     Active Substance: AMLODIPINE BESYLATE
  7. NITROSTAT [Concomitant]
     Active Substance: NITROGLYCERIN
  8. NEXIUM [Suspect]
     Active Substance: ESOMEPRAZOLE MAGNESIUM
     Indication: GASTROOESOPHAGEAL REFLUX DISEASE
     Route: 048
     Dates: start: 2012, end: 2015
  9. NEXIUM [Suspect]
     Active Substance: ESOMEPRAZOLE MAGNESIUM
     Indication: GASTROOESOPHAGEAL REFLUX DISEASE
     Route: 048
  10. FAMOTIDINE. [Concomitant]
     Active Substance: FAMOTIDINE
  11. PRILOSEC [Suspect]
     Active Substance: OMEPRAZOLE MAGNESIUM
     Indication: GASTROOESOPHAGEAL REFLUX DISEASE
     Route: 048
  12. METOPROLOL. [Concomitant]
     Active Substance: METOPROLOL
  13. NORVASC [Concomitant]
     Active Substance: AMLODIPINE BESYLATE
  14. ALBUTEROL. [Concomitant]
     Active Substance: ALBUTEROL
  15. LOPRESSOR [Concomitant]
     Active Substance: METOPROLOL TARTRATE
  16. LISINOPRIL. [Concomitant]
     Active Substance: LISINOPRIL
  17. SIMVASTATIN. [Concomitant]
     Active Substance: SIMVASTATIN
  18. DEXAMETHASONE. [Concomitant]
     Active Substance: DEXAMETHASONE
  19. PRILOSEC [Suspect]
     Active Substance: OMEPRAZOLE MAGNESIUM
     Indication: GASTROOESOPHAGEAL REFLUX DISEASE
     Dosage: GENERIC
     Route: 065
  20. MICROZIDE [Concomitant]
     Active Substance: HYDROCHLOROTHIAZIDE
  21. ATROVENT [Concomitant]
     Active Substance: IPRATROPIUM BROMIDE
  22. ASPIRIN. [Concomitant]
     Active Substance: ASPIRIN
  23. FUROSEMIDE. [Concomitant]
     Active Substance: FUROSEMIDE
  24. SYMBICORT [Concomitant]
     Active Substance: BUDESONIDE\FORMOTEROL FUMARATE DIHYDRATE
  25. KLOR-CON [Concomitant]
     Active Substance: POTASSIUM CHLORIDE
  26. TYLENOL [Concomitant]
     Active Substance: ACETAMINOPHEN
  27. LANOXIN [Concomitant]
     Active Substance: DIGOXIN

REACTIONS (3)
  - Renal failure [Unknown]
  - Acute kidney injury [Unknown]
  - Chronic kidney disease [Unknown]

NARRATIVE: CASE EVENT DATE: 20130707
